FAERS Safety Report 5223059-0 (Version None)
Quarter: 2007Q1

REPORT INFORMATION
  Report Type: 
  Country: None (occurrence: None)
  Receive Date: 20070129
  Receipt Date: 20070123
  Transmission Date: 20070707
  Serious: Yes (Other)
  Sender: FDA-Public Use
  Company Number: US-MERCK-0611USA06096

PATIENT
  Age: 72 Year
  Sex: Female
  Weight: 58 kg

DRUGS (3)
  1. ZOCOR [Suspect]
     Indication: CORONARY ARTERY DISEASE
     Route: 048
     Dates: start: 20060301, end: 20060301
  2. PLAVIX [Suspect]
     Indication: CORONARY ARTERY DISEASE
     Route: 065
     Dates: start: 20060106
  3. NORVASC [Suspect]
     Route: 065

REACTIONS (4)
  - CORONARY ARTERY DISEASE [None]
  - DRUG INEFFECTIVE [None]
  - HYPERSENSITIVITY [None]
  - RASH MACULAR [None]
